FAERS Safety Report 5926285-8 (Version None)
Quarter: 2008Q4

REPORT INFORMATION
  Report Type: 
  Country: None (occurrence: None)
  Receive Date: 20081017
  Receipt Date: 20081003
  Transmission Date: 20090506
  Serious: Yes (Other)
  Sender: FDA-Public Use
  Company Number: 2008S1018245

PATIENT
  Age: 66 Year
  Sex: Male

DRUGS (10)
  1. AMLODIPINE [Suspect]
     Indication: DRUG USE FOR UNKNOWN INDICATION
  2. ASPIRIN [Suspect]
     Indication: DRUG USE FOR UNKNOWN INDICATION
  3. METFORMIN HCL [Suspect]
     Indication: DRUG USE FOR UNKNOWN INDICATION
  4. NIZATIDINE [Suspect]
     Indication: DRUG USE FOR UNKNOWN INDICATION
  5. PAROXETINE HCL [Suspect]
     Indication: DRUG USE FOR UNKNOWN INDICATION
  6. TEMAZEPAM [Suspect]
     Indication: DRUG USE FOR UNKNOWN INDICATION
  7. CANDESARTAN CILEXETIL [Suspect]
     Indication: DRUG USE FOR UNKNOWN INDICATION
  8. HUMALOG [Suspect]
     Indication: DRUG USE FOR UNKNOWN INDICATION
  9. TRAZODONE HCL [Suspect]
     Indication: DRUG USE FOR UNKNOWN INDICATION
  10. VALIUM [Suspect]
     Indication: DRUG USE FOR UNKNOWN INDICATION

REACTIONS (1)
  - DIABETES MELLITUS INADEQUATE CONTROL [None]
